FAERS Safety Report 25089415 (Version 2)
Quarter: 2025Q2

REPORT INFORMATION
  Report Type: Spontaneous
  Country: CN (occurrence: CN)
  Receive Date: 20250318
  Receipt Date: 20250403
  Transmission Date: 20250717
  Serious: Yes (Life-Threatening, Other)
  Sender: BRACCO
  Company Number: CN-BRACCO-2025CN01520

PATIENT
  Age: 59 Year
  Sex: Male

DRUGS (1)
  1. IOMERON [Suspect]
     Active Substance: IOMEPROL
     Indication: Angiogram
     Route: 042
     Dates: start: 20250310, end: 20250310

REACTIONS (10)
  - Hypersensitivity [Unknown]
  - Unresponsive to stimuli [Unknown]
  - Loss of consciousness [Unknown]
  - Blood pressure immeasurable [Unknown]
  - Coma [Unknown]
  - Pneumonia [Recovering/Resolving]
  - Pruritus [Unknown]
  - Vision blurred [Unknown]
  - Conjunctival hyperaemia [Unknown]
  - Dry eye [Unknown]

NARRATIVE: CASE EVENT DATE: 20250310
